FAERS Safety Report 8430790-2 (Version None)
Quarter: 2012Q2

REPORT INFORMATION
  Report Type: 
  Country: None (occurrence: None)
  Receive Date: 20120612
  Receipt Date: 20120607
  Transmission Date: 20120825
  Serious: Yes (Other)
  Sender: FDA-Public Use
  Company Number: AR-ROCHE-1020052

PATIENT
  Sex: Male

DRUGS (1)
  1. LUCENTIS [Suspect]
     Indication: RETINAL DISORDER
     Route: 050
     Dates: start: 20100101

REACTIONS (2)
  - RETINAL HAEMORRHAGE [None]
  - CATARACT [None]
